FAERS Safety Report 9616841 (Version 2)
Quarter: 2013Q4

REPORT INFORMATION
  Report Type: Spontaneous
  Country: US (occurrence: US)
  Receive Date: 20131011
  Receipt Date: 20131023
  Transmission Date: 20140711
  Serious: No
  Sender: FDA-Public Use
  Company Number: US-PFIZER INC-2013289244

PATIENT
  Age: 79 Year
  Sex: Female

DRUGS (5)
  1. GABAPENTIN [Suspect]
     Dosage: UNK
  2. ADVIL [Interacting]
     Dosage: 2 DF, UNK
     Route: 048
  3. MELOXICAM [Interacting]
     Dosage: UNK
  4. ZOLOFT [Interacting]
     Dosage: UNK
  5. TRIAMTERENE [Interacting]
     Dosage: UNK

REACTIONS (4)
  - Drug interaction [Unknown]
  - Pruritus [Recovered/Resolved]
  - Urticaria [Recovered/Resolved]
  - Urticaria [Recovered/Resolved]
